FAERS Safety Report 17925758 (Version 1)
Quarter: 2020Q2

REPORT INFORMATION
  Report Type: Spontaneous
  Country: JP (occurrence: JP)
  Receive Date: 20200623
  Receipt Date: 20200623
  Transmission Date: 20200714
  Serious: Yes (Other)
  Sender: FDA-Public Use
  Company Number: JP-009507513-2006JPN001528J

PATIENT
  Age: 84 Year
  Sex: Male

DRUGS (1)
  1. ZETIA [Suspect]
     Active Substance: EZETIMIBE
     Dosage: UNK
     Route: 048
     Dates: start: 201904, end: 201905

REACTIONS (1)
  - Drug eruption [Unknown]

NARRATIVE: CASE EVENT DATE: 2019
